FAERS Safety Report 11917469 (Version 4)
Quarter: 2016Q2

REPORT INFORMATION
  Report Type: Spontaneous
  Country: US (occurrence: US)
  Receive Date: 20160114
  Receipt Date: 20160519
  Transmission Date: 20160815
  Serious: No
  Sender: FDA-Public Use
  Company Number: US-PFIZER INC-2016015383

PATIENT
  Age: 61 Year
  Sex: Female
  Weight: 83 kg

DRUGS (13)
  1. LANTUS [Concomitant]
     Active Substance: INSULIN GLARGINE
     Indication: DIABETES MELLITUS
     Dosage: 25 IU, DAILY
     Route: 058
  2. CLONIDINE. [Concomitant]
     Active Substance: CLONIDINE
     Indication: BLOOD PRESSURE ABNORMAL
     Dosage: 0.1 MG, 1X/DAY
     Dates: start: 20160102
  3. CARVEDILOL. [Concomitant]
     Active Substance: CARVEDILOL
     Indication: CARDIAC DISORDER
     Dosage: 6.25 MG, 1X/DAY
     Dates: start: 2013
  4. ALLOPURINOL. [Concomitant]
     Active Substance: ALLOPURINOL
     Indication: GOUT
     Dosage: 100 MG, 1X/DAY
  5. NOVOLOG [Concomitant]
     Active Substance: INSULIN ASPART
     Indication: DIABETES MELLITUS
     Dosage: UNK, AS NEEDED
  6. AROMASIN [Suspect]
     Active Substance: EXEMESTANE
     Indication: BREAST CANCER METASTATIC
     Dosage: 25 MG, DAILY
     Route: 048
     Dates: start: 20150312, end: 20160102
  7. AFINITOR [Suspect]
     Active Substance: EVEROLIMUS
     Indication: BREAST CANCER METASTATIC
     Dosage: 10 MG, 1X/DAY
     Route: 048
     Dates: start: 20150312, end: 20160102
  8. CALCITRIOL. [Concomitant]
     Active Substance: CALCITRIOL
     Indication: RENAL DISORDER
     Dosage: 0.5 UG, 1X/DAY
  9. GLYBURIDE/METFORMIN [Concomitant]
     Active Substance: GLYBURIDE\METFORMIN
     Indication: BLOOD GLUCOSE ABNORMAL
     Dosage: 1 DF (2.5MG/500 MG), 2X/DAY
  10. COUMADIN [Concomitant]
     Active Substance: WARFARIN SODIUM
     Indication: PROPHYLAXIS
     Dosage: 1 MG, 1X/DAY
     Dates: start: 2011
  11. PENICILLIN /00000901/ [Concomitant]
     Active Substance: PENICILLIN G
     Indication: CELLULITIS
     Dosage: 500 MG, 1X/DAY
     Dates: start: 200001
  12. TORSEMIDE. [Concomitant]
     Active Substance: TORSEMIDE
     Indication: FLUID RETENTION
     Dosage: 20 MG, 1X/DAY
  13. VITAMIN D3 [Concomitant]
     Active Substance: CHOLECALCIFEROL
     Indication: VITAMIN SUPPLEMENTATION
     Dosage: 1000 IU, 1X/DAY
     Dates: start: 2012

REACTIONS (3)
  - Breast cancer metastatic [Not Recovered/Not Resolved]
  - Disease progression [Not Recovered/Not Resolved]
  - Cough [Not Recovered/Not Resolved]

NARRATIVE: CASE EVENT DATE: 20160102
